FAERS Safety Report 9369580 (Version 1)
Quarter: 2013Q2

REPORT INFORMATION
  Report Type: Spontaneous
  Country: BR (occurrence: BR)
  Receive Date: 20130626
  Receipt Date: 20130626
  Transmission Date: 20140414
  Serious: Yes (Other)
  Sender: FDA-Public Use
  Company Number: BR-SANOFI-AVENTIS-2013SA062676

PATIENT
  Sex: Male
  Weight: 80 kg

DRUGS (6)
  1. LANTUS SOLOSTAR [Suspect]
     Indication: TYPE 2 DIABETES MELLITUS
     Route: 058
     Dates: start: 2010
  2. SOLOSTAR [Suspect]
     Indication: DEVICE THERAPY
     Dates: start: 2010
  3. CARVEDILOL [Concomitant]
     Indication: CARDIAC DISORDER
  4. ENALAPRIL [Concomitant]
     Indication: HYPERTENSION
  5. AAS [Concomitant]
     Indication: HYPERTENSION
  6. VYTORIN [Concomitant]
     Indication: BLOOD CHOLESTEROL

REACTIONS (1)
  - Renal failure [Not Recovered/Not Resolved]
